FAERS Safety Report 10227565 (Version 3)
Quarter: 2014Q4

REPORT INFORMATION
  Report Type: Spontaneous
  Country: CN (occurrence: CN)
  Receive Date: 20140610
  Receipt Date: 20141022
  Transmission Date: 20150528
  Serious: Yes (Hospitalization)
  Sender: FDA-Public Use
  Company Number: PHHY2014CN070311

PATIENT
  Age: 68 Year
  Sex: Female
  Weight: 62 kg

DRUGS (2)
  1. ACLASTA [Suspect]
     Active Substance: ZOLEDRONIC ACID
     Indication: OSTEOPOROSIS
     Dosage: 1 AMPOULE PER DAY
     Route: 042
     Dates: start: 20120601, end: 20140620
  2. ACLASTA [Suspect]
     Active Substance: ZOLEDRONIC ACID
     Dosage: UNK
     Route: 042
     Dates: start: 20140529

REACTIONS (12)
  - Joint warmth [Recovering/Resolving]
  - Erythema [Recovering/Resolving]
  - Osteoarthritis [Recovering/Resolving]
  - Synovitis [Recovering/Resolving]
  - Arthralgia [Recovering/Resolving]
  - Soft tissue disorder [Recovering/Resolving]
  - Arthritis [Recovering/Resolving]
  - Hypertension [Recovering/Resolving]
  - Rotator cuff syndrome [Recovering/Resolving]
  - Joint swelling [Recovering/Resolving]
  - Spinal osteoarthritis [Recovering/Resolving]
  - Flushing [Recovering/Resolving]

NARRATIVE: CASE EVENT DATE: 2012
